FAERS Safety Report 21317764 (Version 1)
Quarter: 2022Q3

REPORT INFORMATION
  Report Type: Spontaneous
  Country: US (occurrence: US)
  Receive Date: 20220911
  Receipt Date: 20220911
  Transmission Date: 20221027
  Serious: No
  Sender: FDA-Public Use
  Company Number: US-SA-2022SA353915

PATIENT
  Age: 24 Year
  Sex: Male

DRUGS (2)
  1. DUPIXENT [Suspect]
     Active Substance: DUPILUMAB
     Indication: Dermatitis atopic
     Dosage: 300 MG, QOW
     Route: 058
     Dates: start: 20211015
  2. RINVOQ [Suspect]
     Active Substance: UPADACITINIB
     Dosage: UNK
     Dates: start: 202206

REACTIONS (2)
  - Lymphadenopathy [Unknown]
  - Secretion discharge [Unknown]

NARRATIVE: CASE EVENT DATE: 20220101
